FAERS Safety Report 5054537-5 (Version None)
Quarter: 2006Q3

REPORT INFORMATION
  Report Type: 
  Country: None (occurrence: None)
  Receive Date: 20060714
  Receipt Date: 20060706
  Transmission Date: 20061208
  Serious: Yes (Hospitalization)
  Sender: FDA-Public Use
  Company Number: 2006084903

PATIENT
  Age: 47 Year
  Sex: Male
  Weight: 82 kg

DRUGS (3)
  1. LIPITOR [Suspect]
     Indication: HYPERCHOLESTEROLAEMIA
     Dosage: 20 MG (20 MG, 1 IN 1 D), ORAL
     Route: 048
     Dates: start: 20030101
  2. RHINOCORT [Suspect]
     Dosage: ONE SPRAY (64 MCG, BID), NASAL
     Route: 045
     Dates: start: 20060627, end: 20060701
  3. PERINDOPRIL ERBUMINE [Concomitant]

REACTIONS (2)
  - ANGINA PECTORIS [None]
  - DRUG INTERACTION [None]
